FAERS Safety Report 5078329-6 (Version None)
Quarter: 2006Q3

REPORT INFORMATION
  Report Type: 
  Country: None (occurrence: None)
  Receive Date: 20060811
  Receipt Date: 20060803
  Transmission Date: 20061208
  Serious: Yes (Other)
  Sender: FDA-Public Use
  Company Number: US-JNJFOC-20060801460

PATIENT
  Sex: Female

DRUGS (9)
  1. REMICADE [Suspect]
     Route: 042
  2. REMICADE [Suspect]
     Route: 042
  3. REMICADE [Suspect]
     Route: 042
  4. REMICADE [Suspect]
     Indication: RHEUMATOID ARTHRITIS
     Route: 042
  5. PREDNISONE [Concomitant]
  6. METHOTREXATE [Concomitant]
  7. GOLD COMPOUNDS [Concomitant]
  8. NSAIDS [Concomitant]
  9. HYDROXYCHLOROQUINE SULFATE [Concomitant]

REACTIONS (1)
  - LYMPHOMA [None]
